FAERS Safety Report 24279004 (Version 4)
Quarter: 2024Q3

REPORT INFORMATION
  Report Type: Spontaneous
  Country: CA (occurrence: CA)
  Receive Date: 20240903
  Receipt Date: 20240918
  Transmission Date: 20241017
  Serious: Yes (Other)
  Sender: PFIZER
  Company Number: CA-PFIZER INC-202300141229

PATIENT
  Age: 53 Year
  Sex: Female

DRUGS (5)
  1. RUXIENCE [Suspect]
     Active Substance: RITUXIMAB-PVVR
     Indication: Mucous membrane pemphigoid
     Dosage: 1000MG, DAY 1 AND 15
     Route: 042
     Dates: start: 20230828, end: 20230911
  2. RUXIENCE [Suspect]
     Active Substance: RITUXIMAB-PVVR
     Dosage: 1000MG,DAY 1 AND 15
     Route: 042
     Dates: start: 20230911
  3. RUXIENCE [Suspect]
     Active Substance: RITUXIMAB-PVVR
     Dosage: 1000MG,DAY 1 AND 15
     Route: 042
     Dates: start: 20240829
  4. RUXIENCE [Suspect]
     Active Substance: RITUXIMAB-PVVR
     Dosage: 1000MG, 2 WEEKS AND 1 DAY (DAY 1 AND DAY 15)
     Route: 042
     Dates: start: 20240913
  5. DAPSONE [Concomitant]
     Active Substance: DAPSONE
     Dosage: UNK

REACTIONS (10)
  - Sensation of foreign body [Recovered/Resolved]
  - Flushing [Recovered/Resolved]
  - Sneezing [Recovered/Resolved]
  - Nasopharyngitis [Unknown]
  - Condition aggravated [Recovered/Resolved]
  - Infection [Not Recovered/Not Resolved]
  - Off label use [Unknown]
  - Off label use [Unknown]
  - Intentional product use issue [Unknown]
  - Incorrect product administration duration [Unknown]

NARRATIVE: CASE EVENT DATE: 20230828
